FAERS Safety Report 18518303 (Version 1)
Quarter: 2020Q4

REPORT INFORMATION
  Report Type: Spontaneous
  Country: DE (occurrence: DE)
  Receive Date: 20201118
  Receipt Date: 20201118
  Transmission Date: 20210114
  Serious: Yes (Other)
  Sender: FDA-Public Use
  Company Number: DE-TEVA-2020-DE-1849254

PATIENT
  Age: 6 Month
  Sex: Male

DRUGS (5)
  1. LINEZOLID. [Suspect]
     Active Substance: LINEZOLID
     Indication: TUBERCULOSIS
     Route: 065
  2. AMIKACIN. [Suspect]
     Active Substance: AMIKACIN
     Indication: TUBERCULOSIS
     Route: 065
  3. CLOFAZIMINE [Concomitant]
     Active Substance: CLOFAZIMINE
     Indication: TUBERCULOSIS
     Route: 065
  4. TERIZIDONE [Concomitant]
     Active Substance: TERIZIDONE
     Indication: TUBERCULOSIS
     Route: 065
  5. AMINOSALICYLIC-ACID [Suspect]
     Active Substance: AMINOSALICYLIC ACID
     Indication: TUBERCULOSIS
     Route: 048

REACTIONS (10)
  - Hepatic enzyme increased [Unknown]
  - Deafness [Unknown]
  - Hypothyroidism [Unknown]
  - Myelosuppression [Unknown]
  - Abdominal discomfort [Unknown]
  - Nausea [Unknown]
  - Condition aggravated [Unknown]
  - Polyneuropathy [Unknown]
  - Abdominal distension [Unknown]
  - Malnutrition [Unknown]
